FAERS Safety Report 18337457 (Version 2)
Quarter: 2020Q4

REPORT INFORMATION
  Report Type: Report from Study
  Country: None (occurrence: US)
  Receive Date: 20201002
  Receipt Date: 20201223
  Transmission Date: 20210113
  Serious: Yes (Hospitalization)
  Sender: FDA-Public Use
  Company Number: US-ABBVIE-20K-163-3587630-00

PATIENT
  Age: 51 Year
  Sex: Male

DRUGS (1)
  1. HUMIRA [Suspect]
     Active Substance: ADALIMUMAB
     Indication: CROHN^S DISEASE
     Dosage: CITRATE FREE
     Route: 058
     Dates: end: 202009

REACTIONS (1)
  - Arthropod bite [Recovered/Resolved]

NARRATIVE: CASE EVENT DATE: 20200903
